FAERS Safety Report 9776821 (Version 1)
Quarter: 2013Q4

REPORT INFORMATION
  Report Type: Spontaneous
  Country: DK (occurrence: DK)
  Receive Date: 20131221
  Receipt Date: 20131221
  Transmission Date: 20140711
  Serious: Yes (Hospitalization)
  Sender: FDA-Public Use
  Company Number: PHHY2013DK144893

PATIENT
  Age: 3 Year
  Sex: Female

DRUGS (9)
  1. VALPROIC ACID [Suspect]
     Indication: CONVULSION
  2. OXCARBAZEPINE [Suspect]
     Indication: CONVULSION
  3. PHENYTOIN [Suspect]
     Indication: CONVULSION
  4. LEVETIRACETAM [Suspect]
     Indication: CONVULSION
  5. TOPIRAMATE [Suspect]
     Indication: CONVULSION
  6. MIDAZOLAM [Suspect]
     Indication: CONVULSION
     Route: 042
  7. PROPOFOL [Suspect]
  8. PHENOBARBITAL [Suspect]
     Indication: CONVULSION
     Route: 042
  9. DIAZEPAM [Suspect]
     Indication: CONVULSION

REACTIONS (1)
  - Status epilepticus [Recovered/Resolved]
